FAERS Safety Report 18485771 (Version 2)
Quarter: 2025Q2

REPORT INFORMATION
  Report Type: Report from Study
  Country: US (occurrence: US)
  Receive Date: 20201110
  Receipt Date: 20250619
  Transmission Date: 20250716
  Serious: Yes (Hospitalization)
  Sender: AUROBINDO
  Company Number: US-MYLANLABS-2020M1093748

PATIENT
  Age: 41 Year
  Sex: Male

DRUGS (1)
  1. BUPROPION HYDROCHLORIDE [Suspect]
     Active Substance: BUPROPION HYDROCHLORIDE
     Indication: Product used for unknown indication
     Route: 048

REACTIONS (5)
  - Serotonin syndrome [Unknown]
  - Hypertension [Unknown]
  - Hyperhidrosis [Unknown]
  - Clonus [Unknown]
  - Tachycardia [Unknown]
